FAERS Safety Report 4989300-4 (Version None)
Quarter: 2006Q2

REPORT INFORMATION
  Report Type: 
  Country: None (occurrence: None)
  Receive Date: 20060425
  Receipt Date: 20060413
  Transmission Date: 20061013
  Serious: Yes (Hospitalization, Other)
  Sender: FDA-Public Use
  Company Number: 2005132515

PATIENT
  Age: 39 Year
  Sex: Male

DRUGS (7)
  1. CELEBREX [Suspect]
     Indication: ILL-DEFINED DISORDER
     Dosage: (200 MG), ORAL
     Route: 048
     Dates: start: 20020101
  2. MONTELUKAST (MONTELUKAST) [Concomitant]
  3. FLEXERIL [Concomitant]
  4. SOMA [Concomitant]
  5. PAXIL [Concomitant]
  6. LORCET-HD [Concomitant]
  7. XANAX [Concomitant]

REACTIONS (5)
  - CELLULITIS [None]
  - DEEP VEIN THROMBOSIS [None]
  - OEDEMA PERIPHERAL [None]
  - THROMBOSIS [None]
  - VENOUS STASIS [None]
